FAERS Safety Report 24001253 (Version 1)
Quarter: 2024Q2

REPORT INFORMATION
  Report Type: Report from Study
  Country: US (occurrence: None)
  Receive Date: 20240621
  Receipt Date: 20240621
  Transmission Date: 20240716
  Serious: Yes (Other)
  Sender: FDA-Public Use
  Company Number: 2024A139684

PATIENT
  Sex: Female

DRUGS (1)
  1. LYNPARZA [Suspect]
     Active Substance: OLAPARIB
     Route: 048
     Dates: start: 20240509

REACTIONS (5)
  - Thrombosis [Unknown]
  - Carbohydrate antigen 125 increased [Unknown]
  - Blood pressure increased [Unknown]
  - Dizziness [Recovering/Resolving]
  - Constipation [Unknown]
